FAERS Safety Report 24313907 (Version 1)
Quarter: 2024Q3

REPORT INFORMATION
  Report Type: Spontaneous
  Country: DE (occurrence: DE)
  Receive Date: 20240912
  Receipt Date: 20240912
  Transmission Date: 20241016
  Serious: No
  Sender: UCB
  Company Number: DE-UCBSA-2024045026

PATIENT
  Sex: Female

DRUGS (2)
  1. NEUPRO [Suspect]
     Active Substance: ROTIGOTINE
     Indication: Neuralgia
     Dosage: 2 MILLIGRAM, ONCE DAILY (QD)
  2. NEUPRO [Suspect]
     Active Substance: ROTIGOTINE
     Indication: Off label use

REACTIONS (3)
  - Product adhesion issue [Unknown]
  - Off label use [Unknown]
  - Product dose omission issue [Unknown]
